FAERS Safety Report 8630577 (Version 2)
Quarter: 2012Q4

REPORT INFORMATION
  Report Type: 
  Country: US (occurrence: US)
  Receive Date: 20120622
  Receipt Date: 20120907
  Transmission Date: 20130627
  Serious: Yes (Hospitalization)
  Sender: FDA-Public Use
  Company Number: US-GENZYME-FABR-1002578

PATIENT
  Age: 48 Year
  Sex: Female
  Weight: 88.45 kg

DRUGS (9)
  1. FABRAZYME [Suspect]
     Indication: FABRY^S DISEASE
     Dosage: 1.01 mg/kg, q2w
     Route: 042
     Dates: start: 2003
  2. ACETAMINOPHEN [Suspect]
     Indication: PREMEDICATION
     Dosage: 1000 mg, UNK
     Route: 065
  3. ASPIRIN [Concomitant]
     Indication: ANTICOAGULANT THERAPY
     Dosage: 81 mg, qd
     Route: 065
     Dates: start: 20040319
  4. COUMADIN [Concomitant]
     Indication: ANTICOAGULANT THERAPY
     Dosage: UNK
     Route: 065
     Dates: start: 20041107
  5. GABAPENTIN [Concomitant]
     Indication: NEURALGIA
     Dosage: 200 mg, bid
     Route: 065
     Dates: start: 20041117
  6. LEXAPRO [Concomitant]
     Indication: PRODUCT USED FOR UNKNOWN INDICATION
     Dosage: 10 mg, qd
     Route: 065
     Dates: start: 20060305
  7. BACLOFEN [Concomitant]
     Indication: MUSCULOSKELETAL STIFFNESS
     Dosage: UNK
     Route: 065
     Dates: start: 20060602
  8. CLARINEX-D [Concomitant]
     Indication: MULTIPLE ALLERGIES
     Dosage: UNK
     Route: 065
     Dates: start: 20071201
  9. ALTACE [Concomitant]
     Indication: PROTEINURIA
     Dosage: 2.5 mg, qd
     Route: 065
     Dates: start: 20100930

REACTIONS (2)
  - Hemiparesis [Not Recovered/Not Resolved]
  - Fall [Recovered/Resolved]
